FAERS Safety Report 13273525 (Version 1)
Quarter: 2017Q1

REPORT INFORMATION
  Report Type: Report from Study
  Country: CO (occurrence: CO)
  Receive Date: 20170227
  Receipt Date: 20170227
  Transmission Date: 20170428
  Serious: Yes (Death, Life-Threatening, Other)
  Sender: FDA-Public Use
  Company Number: CO-AMGEN-COLSL2017028087

PATIENT
  Age: 72 Year
  Sex: Male

DRUGS (1)
  1. XGEVA [Suspect]
     Active Substance: DENOSUMAB
     Indication: BONE DISORDER
     Dosage: 120 MG (1.7 ML), QMO
     Route: 058
     Dates: start: 20160610, end: 20170116

REACTIONS (1)
  - Thrombosis [Fatal]

NARRATIVE: CASE EVENT DATE: 20170126
